FAERS Safety Report 7768563-6 (Version None)
Quarter: 2011Q3

REPORT INFORMATION
  Report Type: 
  Country: None (occurrence: None)
  Receive Date: 20110922
  Receipt Date: 20110602
  Transmission Date: 20111222
  Serious: No
  Sender: FDA-Public Use
  Company Number: US-ASTRAZENECA-2011SE34436

PATIENT
  Age: 41 Year
  Sex: Male
  Weight: 79.4 kg

DRUGS (5)
  1. KLONOPIN [Concomitant]
     Indication: ANXIETY
  2. SEROQUEL XR [Suspect]
     Indication: BIPOLAR DISORDER
     Route: 048
     Dates: start: 20070101
  3. SEROQUEL XR [Suspect]
     Route: 048
     Dates: start: 20090101, end: 20110501
  4. SEROQUEL XR [Suspect]
     Route: 048
  5. SEROQUEL XR [Suspect]
     Route: 048
     Dates: end: 20090101

REACTIONS (10)
  - BLOOD GLUCOSE INCREASED [None]
  - FATIGUE [None]
  - PANIC ATTACK [None]
  - PROSTATIC DISORDER [None]
  - SENSATION OF HEAVINESS [None]
  - DYSPNOEA [None]
  - WEIGHT INCREASED [None]
  - DYSKINESIA [None]
  - TREMOR [None]
  - TACHYCARDIA [None]
